FAERS Safety Report 10585551 (Version 2)
Quarter: 2014Q4

REPORT INFORMATION
  Report Type: Spontaneous
  Country: US (occurrence: US)
  Receive Date: 20141114
  Receipt Date: 20141114
  Transmission Date: 20150529
  Serious: Yes (Hospitalization, Other)
  Sender: FDA-Public Use
  Company Number: US-GLAXOSMITHKLINE-A0766655A

PATIENT
  Sex: Male
  Weight: 94.5 kg

DRUGS (2)
  1. AVANDIA [Suspect]
     Active Substance: ROSIGLITAZONE MALEATE
     Indication: TYPE 2 DIABETES MELLITUS
     Dosage: 2 MG, BID
     Route: 048
     Dates: start: 200310, end: 20060501
  2. AVANDAMET [Suspect]
     Active Substance: METFORMIN HYDROCHLORIDE\ROSIGLITAZONE MALEATE
     Indication: TYPE 2 DIABETES MELLITUS
     Dosage: UNK
     Route: 048
     Dates: start: 200402, end: 200504

REACTIONS (7)
  - Atrioventricular block [Unknown]
  - Chest pain [Unknown]
  - Dyspnoea [Unknown]
  - Arteriosclerosis [Unknown]
  - Cardiac pacemaker insertion [Unknown]
  - Angina pectoris [Not Recovered/Not Resolved]
  - Stent placement [Unknown]
